FAERS Safety Report 4730968-5 (Version None)
Quarter: 2005Q3

REPORT INFORMATION
  Report Type: 
  Country: None (occurrence: None)
  Receive Date: 20050719
  Receipt Date: 20040705
  Transmission Date: 20060218
  Serious: Yes (Hospitalization)
  Sender: FDA-Public Use
  Company Number: 200862

PATIENT
  Age: 52 Year
  Sex: Male
  Weight: 57.6068 kg

DRUGS (9)
  1. AVONEX [Suspect]
     Indication: MULTIPLE SCLEROSIS
     Dosage: 30 UG;QW;IM
     Route: 030
     Dates: end: 20040601
  2. TEGRETOL [Concomitant]
  3. ASPIRIN [Concomitant]
  4. DETROL [Concomitant]
  5. RANITIDINE HCL [Concomitant]
  6. ZOLOFT [Concomitant]
  7. RISPERDAL [Concomitant]
  8. REMERON [Concomitant]
  9. CELLCEPT [Concomitant]

REACTIONS (4)
  - BLINDNESS UNILATERAL [None]
  - MULTIPLE SCLEROSIS RELAPSE [None]
  - PYREXIA [None]
  - URINARY TRACT INFECTION [None]
